FAERS Safety Report 14401628 (Version 1)
Quarter: 2018Q1

REPORT INFORMATION
  Report Type: Report from Study
  Country: BR (occurrence: BR)
  Receive Date: 20180117
  Receipt Date: 20180117
  Transmission Date: 20180509
  Serious: Yes (Other)
  Sender: FDA-Public Use
  Company Number: PHHY2018BR006504

PATIENT
  Sex: Female
  Weight: 53 kg

DRUGS (3)
  1. ACLASTA [Suspect]
     Active Substance: ZOLEDRONIC ACID
     Indication: OSTEOPOROSIS
     Dosage: 1 DF (5MG/100ML) Q12MO
     Route: 042
     Dates: start: 201504
  2. ACLASTA [Suspect]
     Active Substance: ZOLEDRONIC ACID
     Dosage: 1 DF (5MG/100ML) Q12MO
     Route: 042
     Dates: start: 2016
  3. ACLASTA [Suspect]
     Active Substance: ZOLEDRONIC ACID
     Dosage: 1 DF (5MG/100ML) Q12MO
     Route: 042
     Dates: start: 2017, end: 2017

REACTIONS (10)
  - Pain [Unknown]
  - Exostosis [Unknown]
  - Weight decreased [Unknown]
  - Osteoarthritis [Unknown]
  - Renal disorder [Unknown]
  - Diabetes mellitus [Unknown]
  - Peripheral swelling [Unknown]
  - Body height decreased [Unknown]
  - Intervertebral disc protrusion [Unknown]
  - Pain in extremity [Unknown]
